FAERS Safety Report 4393622-8 (Version None)
Quarter: 2004Q3

REPORT INFORMATION
  Report Type: 
  Country: None (occurrence: None)
  Receive Date: 20040709
  Receipt Date: 20040609
  Transmission Date: 20050211
  Serious: Yes (Hospitalization)
  Sender: FDA-Public Use
  Company Number: 200411998JP

PATIENT
  Age: 34 Year
  Sex: Male
  Weight: 73 kg

DRUGS (11)
  1. KETEK [Suspect]
     Indication: BRONCHITIS
     Dosage: DOSE: UNK
     Route: 048
     Dates: start: 20040428, end: 20040502
  2. FLUITRAN [Suspect]
     Indication: HYPERTENSION
     Route: 048
     Dates: start: 20031224, end: 20040521
  3. OZEX [Suspect]
     Indication: BRONCHITIS
     Route: 048
     Dates: start: 20040512, end: 20040519
  4. KERLONG [Concomitant]
     Indication: HYPERTENSION
     Route: 048
     Dates: start: 20010522
  5. NORVASC [Concomitant]
     Indication: HYPERTENSION
     Route: 048
     Dates: start: 20010522
  6. PA [Concomitant]
     Indication: BRONCHITIS
     Route: 048
     Dates: start: 20040428, end: 20040521
  7. HUSCODE [Concomitant]
     Indication: BRONCHITIS
     Route: 048
     Dates: start: 20040428, end: 20040529
  8. HOKUNALIN [Concomitant]
     Indication: BRONCHITIS
     Route: 048
     Dates: start: 20040428, end: 20040529
  9. CLINDAMYCIN HCL [Concomitant]
     Indication: BRONCHITIS
     Route: 041
     Dates: start: 20040428, end: 20040428
  10. ZITHROMAX [Concomitant]
     Indication: BRONCHITIS
     Route: 048
     Dates: start: 20040519, end: 20040521
  11. THEOLONG [Concomitant]
     Indication: BRONCHITIS
     Route: 048
     Dates: start: 20040519, end: 20040521

REACTIONS (7)
  - COUGH [None]
  - NEPHROPATHY TOXIC [None]
  - RENAL DISORDER [None]
  - RENAL IMPAIRMENT [None]
  - UNEVALUABLE EVENT [None]
  - VIRAL INFECTION [None]
  - VOMITING [None]
